FAERS Safety Report 4502071-0 (Version None)
Quarter: 2004Q4

REPORT INFORMATION
  Report Type: 
  Country: None (occurrence: None)
  Receive Date: 20041116
  Receipt Date: 20040709
  Transmission Date: 20050328
  Serious: Yes (Disabling, Other)
  Sender: FDA-Public Use
  Company Number: US-MERCK-0407USA00892

PATIENT
  Age: 43 Year
  Sex: Male
  Weight: 116 kg

DRUGS (4)
  1. VIOXX [Suspect]
     Indication: RHEUMATOID ARTHRITIS
     Route: 048
     Dates: start: 20010101, end: 20030101
  2. VIOXX [Suspect]
     Indication: PAIN IN EXTREMITY
     Route: 048
     Dates: start: 20010101, end: 20030101
  3. NEXIUM [Concomitant]
     Indication: GASTRIC DISORDER
     Route: 065
  4. ACETAMINOPHEN [Concomitant]
     Route: 065
     Dates: start: 19960101

REACTIONS (8)
  - ANGINA PECTORIS [None]
  - ANXIETY [None]
  - CHEST PAIN [None]
  - DYSPNOEA [None]
  - HYPERTENSION [None]
  - MYOCARDIAL INFARCTION [None]
  - PAIN IN EXTREMITY [None]
  - STRESS SYMPTOMS [None]
